FAERS Safety Report 7965928-4 (Version None)
Quarter: 2011Q4

REPORT INFORMATION
  Report Type: 
  Country: None (occurrence: None)
  Receive Date: 20111208
  Receipt Date: 20111201
  Transmission Date: 20120403
  Serious: Yes (Hospitalization)
  Sender: FDA-Public Use
  Company Number: IT-GLAXOSMITHKLINE-B0767621A

PATIENT
  Sex: Male

DRUGS (10)
  1. PLAQUENIL [Suspect]
     Indication: CONNECTIVE TISSUE DISORDER
     Dosage: 200MG PER DAY
     Dates: start: 20080101, end: 20110906
  2. LASIX [Suspect]
     Indication: HYPERTENSION
     Route: 048
     Dates: start: 20080101, end: 20110906
  3. RAMIPRIL [Suspect]
     Indication: HYPERTENSION
     Dosage: 5MG PER DAY
     Dates: start: 20080101, end: 20110906
  4. PREDNISONE TAB [Suspect]
     Indication: CONNECTIVE TISSUE DISORDER
     Dosage: 5MG PER DAY
     Route: 048
     Dates: start: 20080101, end: 20110906
  5. TRENTAL [Suspect]
     Indication: PROPHYLAXIS
     Dosage: 400MG TWICE PER DAY
     Dates: start: 20080101, end: 20110906
  6. ASPIRIN [Concomitant]
     Indication: PROPHYLAXIS
     Route: 048
  7. LAMIVUDINE [Suspect]
     Indication: HEPATITIS B
     Dosage: 100MG PER DAY
     Route: 048
     Dates: start: 20080101, end: 20110906
  8. OMEPRAZOLE [Suspect]
     Indication: PROPHYLAXIS
     Dosage: 20MG PER DAY
     Dates: start: 20080101, end: 20110906
  9. TRAMADOL HCL [Suspect]
     Indication: ANALGESIC THERAPY
     Dosage: 100MG AS REQUIRED
     Dates: start: 20080101, end: 20110906
  10. SPIRIVA [Concomitant]
     Indication: CHRONIC OBSTRUCTIVE PULMONARY DISEASE
     Route: 055

REACTIONS (4)
  - BRADYPHRENIA [None]
  - HYPOTENSION [None]
  - HYPONATRAEMIA [None]
  - ASTHENIA [None]
